FAERS Safety Report 8046960-1 (Version None)
Quarter: 2012Q1

REPORT INFORMATION
  Report Type: 
  Country: None (occurrence: None)
  Receive Date: 20120116
  Receipt Date: 20120112
  Transmission Date: 20120608
  Serious: No
  Sender: FDA-Public Use
  Company Number: US-BAYER-2012-004261

PATIENT
  Sex: Female

DRUGS (1)
  1. MIRENA [Suspect]
     Dosage: 24 MCG/24HR, CONT
     Dates: start: 20120104

REACTIONS (2)
  - PROCEDURAL PAIN [None]
  - DEVICE DIFFICULT TO USE [None]
